FAERS Safety Report 10914630 (Version 2)
Quarter: 2016Q3

REPORT INFORMATION
  Report Type: Report from Study
  Country: GB (occurrence: GB)
  Receive Date: 20150313
  Receipt Date: 20160705
  Transmission Date: 20161109
  Serious: Yes (Death, Other)
  Sender: FDA-Public Use
  Company Number: GB-GLAXOSMITHKLINE-GB2015030257

PATIENT
  Age: 67 Year
  Sex: Female
  Weight: 60 kg

DRUGS (11)
  1. MEROPENEM. [Concomitant]
     Active Substance: MEROPENEM
  2. OSELTAMIVIR [Concomitant]
     Active Substance: OSELTAMIVIR
  3. PREDNISOLONE. [Concomitant]
     Active Substance: PREDNISOLONE
  4. FUROSEMIDE. [Concomitant]
     Active Substance: FUROSEMIDE
  5. LEVOTHYROXINE. [Concomitant]
     Active Substance: LEVOTHYROXINE
  6. METOPROLOL. [Concomitant]
     Active Substance: METOPROLOL
  7. ZANAMIVIR [Suspect]
     Active Substance: ZANAMIVIR
     Indication: PNEUMONIA VIRAL
     Dosage: 60 MG, BID
     Route: 042
     Dates: start: 20150202, end: 20150204
  8. AMIODARONE [Concomitant]
     Active Substance: AMIODARONE
  9. NOREPINEPHRINE [Concomitant]
     Active Substance: NOREPINEPHRINE\NOREPINEPHRINE BITARTRATE
  10. HUMAN ACTRAPID [Concomitant]
     Active Substance: INSULIN HUMAN
  11. METHYLPREDNISOLONE. [Concomitant]
     Active Substance: METHYLPREDNISOLONE

REACTIONS (2)
  - Death [Fatal]
  - Drug ineffective [Unknown]
